FAERS Safety Report 6400149-8 (Version None)
Quarter: 2009Q4

REPORT INFORMATION
  Report Type: 
  Country: None (occurrence: None)
  Receive Date: 20091014
  Receipt Date: 20091006
  Transmission Date: 20100525
  Serious: Yes (Hospitalization)
  Sender: FDA-Public Use
  Company Number: BR-BAYER-200922052LA

PATIENT
  Age: 31 Year
  Sex: Female

DRUGS (5)
  1. BETAFERON [Suspect]
     Indication: MULTIPLE SCLEROSIS
     Dosage: BETAJECT
     Route: 058
     Dates: start: 20091003
  2. BETAFERON [Suspect]
     Dosage: BETAJECT / INTERRUPTED DURING HOSPITALIZATION
     Route: 058
     Dates: start: 20090101, end: 20090101
  3. ANTIBIOTIC [Concomitant]
     Dosage: DURING SECOND HOSPITALIZATION
     Route: 065
     Dates: start: 20090101
  4. EXPECTORANT [Concomitant]
     Dosage: DURING SECOND HOSPITALIZATION
     Route: 065
     Dates: start: 20090101
  5. METIDAN [Concomitant]
     Route: 065
     Dates: start: 20080101

REACTIONS (9)
  - DYSPNOEA [None]
  - FAECAL VOMITING [None]
  - FALL [None]
  - MUSCULAR WEAKNESS [None]
  - MUSCULOSKELETAL STIFFNESS [None]
  - PNEUMONIA [None]
  - TOOTH FRACTURE [None]
  - URINARY RETENTION [None]
  - VOMITING [None]
